FAERS Safety Report 9607431 (Version 1)
Quarter: 2013Q4

REPORT INFORMATION
  Report Type: Spontaneous
  Country: US (occurrence: None)
  Receive Date: 20131007
  Receipt Date: 20131007
  Transmission Date: 20140711
  Serious: Yes (Other)
  Sender: FDA-Public Use
  Company Number: None

PATIENT
  Age: 23 Year
  Sex: Male
  Weight: 68.04 kg

DRUGS (1)
  1. SERTRALINE HCL 100MG AUROBINDO [Suspect]
     Indication: ANXIETY
     Route: 048
     Dates: start: 20111001, end: 20131006

REACTIONS (8)
  - Dizziness [None]
  - Paraesthesia [None]
  - Lethargy [None]
  - Headache [None]
  - Insomnia [None]
  - Irritability [None]
  - Anxiety [None]
  - Depressed mood [None]
